FAERS Safety Report 26114018 (Version 1)
Quarter: 2025Q4

REPORT INFORMATION
  Report Type: Other
  Country: EU (occurrence: EU)
  Receive Date: 20251202
  Receipt Date: 20251202
  Transmission Date: 20260118
  Serious: Yes (Hospitalization, Other)
  Sender: INCYTE
  Company Number: EU-002147023-NVSC2025FR183171

PATIENT
  Age: 55 Year

DRUGS (3)
  1. RUXOLITINIB [Suspect]
     Active Substance: RUXOLITINIB
     Indication: Lichenoid keratosis
     Dosage: 30 MG, QD, (15 MG, COMPRIM?)
  2. AUGMENTIN [Suspect]
     Active Substance: AMOXICILLIN\CLAVULANATE POTASSIUM
     Indication: Actinomycotic pulmonary infection
     Dosage: 3 G, QD
  3. BACTRIM [Suspect]
     Active Substance: SULFAMETHOXAZOLE\TRIMETHOPRIM
     Indication: Product used for unknown indication
     Dosage: 3 DOSAGE FORM (QW)

REACTIONS (1)
  - Aplastic anaemia [Not Recovered/Not Resolved]
